FAERS Safety Report 21547653 (Version 2)
Quarter: 2023Q1

REPORT INFORMATION
  Report Type: Report from Study
  Country: US (occurrence: US)
  Receive Date: 20221103
  Receipt Date: 20230103
  Transmission Date: 20230418
  Serious: No
  Sender: FDA-Public Use
  Company Number: US-ABBVIE-4152572

PATIENT
  Sex: Female

DRUGS (4)
  1. HUMIRA [Suspect]
     Active Substance: ADALIMUMAB
     Indication: Rheumatoid arthritis
     Dosage: FORM STRENGTH: 40 MILLIGRAM
     Route: 058
  2. COVID-19 vaccine [Concomitant]
     Indication: COVID-19 immunisation
     Dosage: 3RD DOSE, ONCE
     Route: 030
     Dates: start: 20220103, end: 20220103
  3. COVID-19 vaccine [Concomitant]
     Indication: COVID-19 immunisation
     Dosage: 1ST DOSE, ONCE
     Route: 030
     Dates: start: 20210420, end: 20210420
  4. COVID-19 vaccine [Concomitant]
     Indication: COVID-19 immunisation
     Dosage: 2ND DOSE
     Route: 030
     Dates: start: 20210511, end: 20210511

REACTIONS (1)
  - Joint lock [Unknown]
